FAERS Safety Report 10967880 (Version 2)
Quarter: 2015Q2

REPORT INFORMATION
  Report Type: Spontaneous
  Country: US (occurrence: US)
  Receive Date: 20150330
  Receipt Date: 20150406
  Transmission Date: 20150821
  Serious: Yes (Hospitalization, Other)
  Sender: FDA-Public Use
  Company Number: US-GLAXOSMITHKLINE-US2015041064

PATIENT
  Age: 59 Year
  Sex: Female
  Weight: 40 kg

DRUGS (2)
  1. EQUATE NICOTINE [Suspect]
     Active Substance: NICOTINE
     Indication: SMOKING CESSATION THERAPY
     Dosage: 21 MG, SINGLE
     Route: 062
  2. SPIRIVA [Concomitant]
     Active Substance: TIOTROPIUM BROMIDE MONOHYDRATE
     Indication: CHRONIC OBSTRUCTIVE PULMONARY DISEASE

REACTIONS (5)
  - Respiratory failure [Unknown]
  - Brain natriuretic peptide increased [Unknown]
  - Hypersensitivity [Unknown]
  - Carbon dioxide increased [Unknown]
  - Urticaria [Unknown]

NARRATIVE: CASE EVENT DATE: 20150324
